FAERS Safety Report 7405745-7 (Version None)
Quarter: 2011Q2

REPORT INFORMATION
  Report Type: 
  Country: None (occurrence: None)
  Receive Date: 20110411
  Receipt Date: 20110404
  Transmission Date: 20111010
  Serious: Yes (Death)
  Sender: FDA-Public Use
  Company Number: GB-PFIZER INC-2011074634

PATIENT
  Age: 19 Year
  Sex: Female

DRUGS (1)
  1. ANIDULAFUNGIN [Suspect]
     Dosage: 100 UG, UNK
     Dates: start: 20100529, end: 20100713

REACTIONS (1)
  - RENAL FAILURE [None]
